FAERS Safety Report 22080813 (Version 1)
Quarter: 2023Q1

REPORT INFORMATION
  Report Type: Spontaneous
  Country: US (occurrence: US)
  Receive Date: 20230309
  Receipt Date: 20230309
  Transmission Date: 20230418
  Serious: Yes (Other)
  Sender: FDA-Public Use
  Company Number: US-PFIZER INC-202300101066

PATIENT
  Sex: Female

DRUGS (1)
  1. IBRANCE [Suspect]
     Active Substance: PALBOCICLIB
     Dosage: UNK

REACTIONS (7)
  - Deafness [Unknown]
  - Herpes zoster [Unknown]
  - Upper respiratory tract congestion [Unknown]
  - Dizziness [Unknown]
  - Speech disorder [Unknown]
  - Pain [Unknown]
  - Pain in extremity [Unknown]
